FAERS Safety Report 25834097 (Version 1)
Quarter: 2025Q3

REPORT INFORMATION
  Report Type: Spontaneous
  Country: US (occurrence: US)
  Receive Date: 20250923
  Receipt Date: 20250923
  Transmission Date: 20251020
  Serious: No
  Sender: DAIICHI
  Company Number: US-DSJP-DS-2025-165804-US

PATIENT
  Sex: Female

DRUGS (1)
  1. DATROWAY [Suspect]
     Active Substance: DATOPOTAMAB DERUXTECAN-DLNK
     Indication: Non-small cell lung cancer metastatic
     Dosage: 6 MG/KG, ONCE EVERY 3 WK
     Route: 065

REACTIONS (2)
  - Mucosal inflammation [Unknown]
  - Oropharyngeal pain [Unknown]
